FAERS Safety Report 4895735-0 (Version None)
Quarter: 2006Q1

REPORT INFORMATION
  Report Type: 
  Country: None (occurrence: None)
  Receive Date: 20060125
  Receipt Date: 20060104
  Transmission Date: 20060701
  Serious: Yes (Death)
  Sender: FDA-Public Use
  Company Number: US200601000651

PATIENT
  Age: 28 Year
  Sex: 0

DRUGS (2)
  1. PROZAC [Suspect]
     Dosage: ORAL
     Route: 048
  2. CLONAZEPAM [Concomitant]

REACTIONS (4)
  - CARDIAC ARREST [None]
  - COMPLETED SUICIDE [None]
  - DRUG TOXICITY [None]
  - RESPIRATORY ARREST [None]
